FAERS Safety Report 10199858 (Version 2)
Quarter: 2014Q2

REPORT INFORMATION
  Report Type: Spontaneous
  Country: US (occurrence: US)
  Receive Date: 20140527
  Receipt Date: 20140603
  Transmission Date: 20141212
  Serious: No
  Sender: FDA-Public Use
  Company Number: US-BAXTER-2014BAX024409

PATIENT
  Age: 61 Year
  Sex: Female

DRUGS (2)
  1. 0.9% SODIUM CHLORIDE INJECTION [Suspect]
     Indication: HAEMODIALYSIS
     Route: 010
     Dates: start: 201308
  2. HYDRALAZINE [Concomitant]
     Indication: BLOOD PRESSURE
     Route: 065

REACTIONS (1)
  - Blood pressure decreased [Not Recovered/Not Resolved]
